FAERS Safety Report 13486684 (Version 1)
Quarter: 2017Q2

REPORT INFORMATION
  Report Type: Report from Study
  Country: CA (occurrence: CA)
  Receive Date: 20170426
  Receipt Date: 20170426
  Transmission Date: 20170830
  Serious: Yes (Death, Life-Threatening, Hospitalization, Other)
  Sender: FDA-Public Use
  Company Number: CA-ASTRAZENECA-2016SE10150

PATIENT
  Age: 30257 Day
  Sex: Male

DRUGS (1)
  1. ZOLADEX LA [Suspect]
     Active Substance: GOSERELIN ACETATE
     Indication: PROSTATE CANCER
     Route: 058
     Dates: start: 20151027

REACTIONS (7)
  - Coronary artery occlusion [Not Recovered/Not Resolved]
  - Death [Fatal]
  - Pancreatic carcinoma [Unknown]
  - Cardiac arrest [Unknown]
  - Diarrhoea [Unknown]
  - Lethargy [Unknown]
  - Renal failure [Unknown]

NARRATIVE: CASE EVENT DATE: 20160113
